FAERS Safety Report 12296675 (Version 1)
Quarter: 2016Q2

REPORT INFORMATION
  Report Type: Spontaneous
  Country: US (occurrence: US)
  Receive Date: 20160422
  Receipt Date: 20160422
  Transmission Date: 20160815
  Serious: No
  Sender: FDA-Public Use
  Company Number: US-ALK-ABELLO A/S-1050878

PATIENT
  Age: 12 Year
  Sex: Male

DRUGS (4)
  1. VENOMS, MIXED VESPID VENOM PROTEIN [Suspect]
     Active Substance: DOLICHOVESPULA ARENARIA VENOM PROTEIN\ DOLICHOVESPULA MACULATA VENOM PROTEIN\ VESPULA MACULIFRONS VENOM PROTEIN
     Indication: ANAPHYLACTIC REACTION
     Route: 058
     Dates: start: 20150708, end: 20160105
  2. IBUPROFEN. [Concomitant]
     Active Substance: IBUPROFEN
     Route: 048
  3. ALLEGRA [Concomitant]
     Active Substance: FEXOFENADINE HYDROCHLORIDE
     Route: 048
  4. IMMUNOTHERAPY FOR AIRBORNE ALLERGENS [Concomitant]
     Route: 058

REACTIONS (1)
  - Injection site urticaria [Recovered/Resolved]

NARRATIVE: CASE EVENT DATE: 20151222
